FAERS Safety Report 10022171 (Version 1)
Quarter: 2014Q1

REPORT INFORMATION
  Report Type: Spontaneous
  Country: HR (occurrence: HR)
  Receive Date: 20140319
  Receipt Date: 20140319
  Transmission Date: 20141002
  Serious: Yes (Hospitalization)
  Sender: FDA-Public Use
  Company Number: HR-GLAXOSMITHKLINE-B0972831A

PATIENT
  Age: 49 Year
  Sex: Male

DRUGS (7)
  1. LAMOTRIGINE [Suspect]
     Indication: PSYCHOTIC DISORDER DUE TO A GENERAL MEDICAL CONDITION
     Dosage: 50MG PER DAY
     Route: 065
  2. DIAZEPAM [Concomitant]
     Dosage: 5MG PER DAY
  3. PROMAZINE [Concomitant]
  4. QUETIAPINE [Concomitant]
  5. HALOPERIDOL [Concomitant]
  6. ZOLPIDEM [Concomitant]
  7. BENZODIAZEPINES [Concomitant]
     Indication: SUICIDE ATTEMPT

REACTIONS (17)
  - Toxic epidermal necrolysis [Recovered/Resolved]
  - Rash macular [Unknown]
  - Drug hypersensitivity [Unknown]
  - Macule [Unknown]
  - Skin disorder [Unknown]
  - Blister [Unknown]
  - Dehydration [Unknown]
  - Skin lesion [Unknown]
  - Lip exfoliation [Unknown]
  - Staphylococcal infection [Unknown]
  - White blood cell count decreased [Unknown]
  - Dermatitis [Unknown]
  - Oral disorder [Unknown]
  - Genital lesion [Unknown]
  - Pyrexia [Unknown]
  - Pigmentation disorder [Unknown]
  - Pain [Unknown]
